FAERS Safety Report 13791893 (Version 1)
Quarter: 2017Q3

REPORT INFORMATION
  Report Type: Spontaneous
  Country: CN (occurrence: CN)
  Receive Date: 20170725
  Receipt Date: 20170725
  Transmission Date: 20171127
  Serious: Yes (Other)
  Sender: FDA-Public Use
  Company Number: CN-ABBVIE-17P-035-2050420-00

PATIENT
  Sex: Male

DRUGS (3)
  1. DEPAKINE CHRONO [Suspect]
     Active Substance: VALPROATE SODIUM
     Indication: EPILEPSY
     Route: 048
     Dates: start: 2012
  2. DEPAKINE CHRONO [Suspect]
     Active Substance: VALPROATE SODIUM
     Route: 048
     Dates: start: 2015, end: 201704
  3. DEPAKINE CHRONO [Suspect]
     Active Substance: VALPROATE SODIUM
     Indication: EPILEPSY
     Dosage: EXTENDED RELEASE TABLET
     Route: 048
     Dates: start: 201704

REACTIONS (8)
  - Epilepsy [Unknown]
  - Drug level decreased [Unknown]
  - Muscle spasms [Unknown]
  - Memory impairment [Unknown]
  - Dyskinesia [Unknown]
  - Eye movement disorder [Unknown]
  - Salivary hypersecretion [Unknown]
  - Product storage error [Unknown]

NARRATIVE: CASE EVENT DATE: 2015
